FAERS Safety Report 8354669-X (Version None)
Quarter: 2012Q2

REPORT INFORMATION
  Report Type: 
  Country: None (occurrence: None)
  Receive Date: 20120511
  Receipt Date: 20120427
  Transmission Date: 20120825
  Serious: No
  Sender: FDA-Public Use
  Company Number: US-ENDO PHARMACEUTICALS INC.-PERC20120087

PATIENT
  Sex: Male
  Weight: 99.88 kg

DRUGS (2)
  1. PERCOCET [Suspect]
     Indication: PRODUCT USED FOR UNKNOWN INDICATION
     Dosage: 10MG/325MG
     Route: 048
  2. PERCOCET [Suspect]
     Dosage: 10MG/650MG
     Route: 048

REACTIONS (2)
  - INCREASED UPPER AIRWAY SECRETION [None]
  - COUGH [None]
